FAERS Safety Report 25524146 (Version 2)
Quarter: 2025Q3

REPORT INFORMATION
  Report Type: Spontaneous
  Country: US (occurrence: US)
  Receive Date: 20250707
  Receipt Date: 20250919
  Transmission Date: 20251020
  Serious: Yes (Hospitalization)
  Sender: JOHNSON AND JOHNSON
  Company Number: US-JNJFOC-20250704503

PATIENT
  Sex: Female

DRUGS (3)
  1. CARVYKTI [Suspect]
     Active Substance: CILTACABTAGENE AUTOLEUCEL
     Indication: Product used for unknown indication
     Route: 065
  2. ELIQUIS [Concomitant]
     Active Substance: APIXABAN
     Indication: Product used for unknown indication
  3. IMMUNOGLOBULINS [Concomitant]
     Indication: Product used for unknown indication

REACTIONS (4)
  - Cytokine release syndrome [Unknown]
  - Neurotoxicity [Unknown]
  - Skin abrasion [Unknown]
  - Fall [Unknown]
